FAERS Safety Report 6467436-9 (Version None)
Quarter: 2009Q4

REPORT INFORMATION
  Report Type: 
  Country: None (occurrence: None)
  Receive Date: 20091202
  Receipt Date: 20091126
  Transmission Date: 20100525
  Serious: Yes (Death)
  Sender: FDA-Public Use
  Company Number: B0606108A

PATIENT
  Sex: Male
  Weight: 95 kg

DRUGS (8)
  1. ZANAMIVIR [Suspect]
     Indication: H1N1 INFLUENZA
     Dosage: 600MG SEE DOSAGE TEXT
     Route: 042
     Dates: start: 20091026
  2. OSELTAMIVIR [Concomitant]
     Dosage: 75MG TWICE PER DAY
     Route: 048
  3. ADRENALINE [Concomitant]
     Route: 065
  4. COLIMYCINE [Concomitant]
     Route: 065
  5. TIENAM [Concomitant]
     Route: 065
  6. PROGRAFT [Concomitant]
     Route: 065
  7. CORTANCYL [Concomitant]
     Route: 065
  8. CANCIDAS [Concomitant]
     Route: 065

REACTIONS (4)
  - BLOOD DISORDER [None]
  - CONDITION AGGRAVATED [None]
  - GENERAL PHYSICAL HEALTH DETERIORATION [None]
  - SHOCK [None]
